FAERS Safety Report 11036778 (Version 1)
Quarter: 2015Q2

REPORT INFORMATION
  Report Type: Spontaneous
  Country: GB (occurrence: GB)
  Receive Date: 20150416
  Receipt Date: 20150416
  Transmission Date: 20150821
  Serious: Yes (Hospitalization)
  Sender: FDA-Public Use
  Company Number: GB-ACCORD-030019

PATIENT
  Age: 77 Year
  Sex: Female

DRUGS (7)
  1. CALCICHEW [Concomitant]
     Active Substance: CALCIUM CARBONATE
  2. FOLIC ACID. [Concomitant]
     Active Substance: FOLIC ACID
  3. COLECALCIFEROL [Concomitant]
     Active Substance: CHOLECALCIFEROL
  4. SIMVASTATIN. [Suspect]
     Active Substance: SIMVASTATIN
     Indication: HYPERCHOLESTEROLAEMIA
     Dosage: NIGHTLY
     Route: 048
     Dates: end: 20150215
  5. BISOPROLOL [Concomitant]
     Active Substance: BISOPROLOL
  6. RANITIDINE [Concomitant]
     Active Substance: RANITIDINE\RANITIDINE HYDROCHLORIDE
  7. SENNA [Concomitant]
     Active Substance: SENNA LEAF\SENNOSIDES\SENNOSIDES A AND B

REACTIONS (4)
  - Dehydration [Recovering/Resolving]
  - Fall [Unknown]
  - Acute kidney injury [Recovering/Resolving]
  - Rhabdomyolysis [Recovering/Resolving]
